FAERS Safety Report 10672891 (Version 1)
Quarter: 2014Q4

REPORT INFORMATION
  Report Type: Other
  Country: JP (occurrence: JP)
  Receive Date: 20141223
  Receipt Date: 20141223
  Transmission Date: 20150529
  Serious: Yes (Death, Hospitalization)
  Sender: FDA-Public Use
  Company Number: JP-BAUSCH-BL-2014-008929

PATIENT
  Age: 39 Year
  Sex: Female

DRUGS (4)
  1. NIFEDIPINE. [Suspect]
     Active Substance: NIFEDIPINE
     Indication: PRINZMETAL ANGINA
  2. ISOSORBIDE DINITRATE. [Suspect]
     Active Substance: ISOSORBIDE DINITRATE
     Indication: PRINZMETAL ANGINA
  3. NICORANDIL [Suspect]
     Active Substance: NICORANDIL
     Indication: PRINZMETAL ANGINA
  4. NICORANDIL [Suspect]
     Active Substance: NICORANDIL
     Dosage: 2 MG/H
     Route: 041

REACTIONS (4)
  - Prinzmetal angina [Unknown]
  - Multi-organ failure [Fatal]
  - Ventricular fibrillation [Unknown]
  - Angina unstable [Unknown]
